FAERS Safety Report 9286529 (Version 1)
Quarter: 2013Q2

REPORT INFORMATION
  Report Type: Spontaneous
  Country: US (occurrence: US)
  Receive Date: 20130513
  Receipt Date: 20130513
  Transmission Date: 20140414
  Serious: Yes (Hospitalization)
  Sender: FDA-Public Use
  Company Number: US-ELI_LILLY_AND_COMPANY-US201302001272

PATIENT
  Age: 40 Year
  Sex: Female
  Weight: 50.79 kg

DRUGS (9)
  1. EFFIENT [Suspect]
     Indication: CORONARY ARTERY DISEASE
     Dosage: 5 MG, QD
     Dates: start: 20120125
  2. CYMBALTA [Concomitant]
  3. VITAMIN D [Concomitant]
  4. ASA [Concomitant]
  5. FLEXERIL [Concomitant]
  6. HYDROCODONE [Concomitant]
  7. LISINOPRIL [Concomitant]
  8. METOPROLOL [Concomitant]
  9. ZETIA [Concomitant]

REACTIONS (1)
  - Myocardial infarction [Unknown]
